FAERS Safety Report 5042816-7 (Version None)
Quarter: 2006Q3

REPORT INFORMATION
  Report Type: 
  Country: None (occurrence: None)
  Receive Date: 20060705
  Receipt Date: 20060607
  Transmission Date: 20061208
  Serious: Yes (Other)
  Sender: FDA-Public Use
  Company Number: JP-ROCHE-451183

PATIENT
  Age: 60 Year
  Sex: Male
  Weight: 45 kg

DRUGS (10)
  1. CELLCEPT [Suspect]
     Route: 048
     Dates: start: 20050615, end: 20060607
  2. CELLCEPT [Suspect]
     Route: 048
     Dates: start: 20060608
  3. EPOGEN [Concomitant]
     Route: 042
     Dates: start: 20060317, end: 20060602
  4. ESPO [Concomitant]
     Route: 058
     Dates: start: 20050916, end: 20060303
  5. PREDONINE [Concomitant]
     Route: 048
     Dates: start: 20060608
  6. OMEPRAL [Concomitant]
     Route: 048
     Dates: start: 20060608
  7. LASIX [Concomitant]
     Route: 048
     Dates: start: 20060608
  8. PERSANTIN [Concomitant]
     Route: 048
     Dates: start: 20040615
  9. KREMEZIN [Concomitant]
     Route: 048
     Dates: start: 20040615
  10. AMIYU [Concomitant]
     Route: 048
     Dates: start: 20060608

REACTIONS (1)
  - APLASIA PURE RED CELL [None]
